FAERS Safety Report 6171941-2 (Version None)
Quarter: 2009Q2

REPORT INFORMATION
  Report Type: 
  Country: None (occurrence: None)
  Receive Date: 20090428
  Receipt Date: 20090428
  Transmission Date: 20091009
  Serious: Yes (Life-Threatening, Hospitalization)
  Sender: FDA-Public Use
  Company Number: None

PATIENT
  Sex: Male
  Weight: 79.3795 kg

DRUGS (1)
  1. HALDOL [Suspect]
     Indication: SCHIZOPHRENIA
     Dates: start: 20090414, end: 20090427

REACTIONS (21)
  - ABNORMAL BEHAVIOUR [None]
  - CONFUSIONAL STATE [None]
  - CRYING [None]
  - DROOLING [None]
  - DYSKINESIA [None]
  - DYSPHAGIA [None]
  - HALLUCINATION [None]
  - HYPERHIDROSIS [None]
  - INAPPROPRIATE AFFECT [None]
  - INFECTION [None]
  - MENTAL STATUS CHANGES [None]
  - MOOD ALTERED [None]
  - MUSCLE RIGIDITY [None]
  - MUSCLE TWITCHING [None]
  - MUSCULOSKELETAL STIFFNESS [None]
  - PYREXIA [None]
  - SPEECH DISORDER [None]
  - SUICIDE ATTEMPT [None]
  - TREMOR [None]
  - VISUAL IMPAIRMENT [None]
  - WHITE BLOOD CELL COUNT INCREASED [None]
